FAERS Safety Report 15329901 (Version 2)
Quarter: 2019Q1

REPORT INFORMATION
  Report Type: Spontaneous
  Country: US (occurrence: US)
  Receive Date: 20180829
  Receipt Date: 20190128
  Transmission Date: 20190417
  Serious: No
  Sender: FDA-Public Use
  Company Number: US-PFIZER INC-2018239678

PATIENT
  Age: 75 Year
  Sex: Female
  Weight: 79.37 kg

DRUGS (1)
  1. XELJANZ XR [Suspect]
     Active Substance: TOFACITINIB CITRATE
     Indication: PSORIATIC ARTHROPATHY
     Dosage: 11 MG, DAILY
     Route: 048
     Dates: start: 201804

REACTIONS (1)
  - Tooth infection [Recovered/Resolved]

NARRATIVE: CASE EVENT DATE: 2018
